FAERS Safety Report 8480636-1 (Version None)
Quarter: 2012Q3

REPORT INFORMATION
  Report Type: 
  Country: None (occurrence: None)
  Receive Date: 20120702
  Receipt Date: 20090120
  Transmission Date: 20120928
  Serious: No
  Sender: FDA-Public Use
  Company Number: 2009BI002265

PATIENT
  Sex: Female

DRUGS (1)
  1. TYSABRI [Suspect]
     Indication: MULTIPLE SCLEROSIS
     Route: 042
     Dates: start: 20070622

REACTIONS (10)
  - APHAGIA [None]
  - BLOOD GLUCOSE INCREASED [None]
  - GAIT DISTURBANCE [None]
  - DECREASED IMMUNE RESPONSIVENESS [None]
  - NASAL CONGESTION [None]
  - PAIN IN EXTREMITY [None]
  - TOOTH INFECTION [None]
  - COUGH [None]
  - DECREASED APPETITE [None]
  - WISDOM TEETH REMOVAL [None]
